FAERS Safety Report 6069249-9 (Version None)
Quarter: 2009Q1

REPORT INFORMATION
  Report Type: 
  Country: None (occurrence: None)
  Receive Date: 20090206
  Receipt Date: 20090203
  Transmission Date: 20090719
  Serious: Yes (Life-Threatening)
  Sender: FDA-Public Use
  Company Number: PHEH2009US01229

PATIENT
  Sex: Female

DRUGS (1)
  1. VIVELLE-DOT [Suspect]
     Dosage: 0.1 MG/DAY
     Route: 062

REACTIONS (2)
  - INCORRECT DOSE ADMINISTERED [None]
  - SUICIDAL IDEATION [None]
